FAERS Safety Report 17058390 (Version 2)
Quarter: 2019Q4

REPORT INFORMATION
  Report Type: Spontaneous
  Country: US (occurrence: US)
  Receive Date: 20191121
  Receipt Date: 20191219
  Transmission Date: 20200122
  Serious: Yes (Other)
  Sender: FDA-Public Use
  Company Number: US-SCA PHARMACEUTICALS-2019SCA00034

PATIENT
  Age: 65 Year
  Weight: 95.24 kg

DRUGS (20)
  1. CRESTOR [Concomitant]
     Active Substance: ROSUVASTATIN CALCIUM
  2. NORMAL SALINE [Concomitant]
     Active Substance: SODIUM CHLORIDE
  3. ASA (PRESUMED ASPIRIN) [Concomitant]
  4. HEPARIN SODIUM IN SODIUM CHLORIDE [Suspect]
     Active Substance: HEPARIN SODIUM
     Dosage: UNK
     Route: 013
     Dates: start: 20191107, end: 201911
  5. JARDIANCE [Concomitant]
     Active Substance: EMPAGLIFLOZIN
  6. METOPROLOL. [Concomitant]
     Active Substance: METOPROLOL
  7. FENTANYL. [Concomitant]
     Active Substance: FENTANYL
  8. VITAMIN D3 [Concomitant]
     Active Substance: CHOLECALCIFEROL
  9. MAGNESIUM [Concomitant]
     Active Substance: MAGNESIUM
  10. BUPIVACAINE. [Concomitant]
     Active Substance: BUPIVACAINE
  11. CINNAMOMUM VERUM BARK [Concomitant]
     Active Substance: CINNAMON
  12. MULTIVITAMIN [Concomitant]
     Active Substance: VITAMINS
  13. COENZYME Q10 [Concomitant]
     Active Substance: UBIDECARENONE
  14. RANEXA [Concomitant]
     Active Substance: RANOLAZINE
  15. HEPARIN SODIUM IN SODIUM CHLORIDE [Suspect]
     Active Substance: HEPARIN SODIUM
     Dosage: UNK
     Route: 013
     Dates: start: 20191107, end: 201911
  16. LANTUS [Concomitant]
     Active Substance: INSULIN GLARGINE
  17. VERSED [Concomitant]
     Active Substance: MIDAZOLAM HYDROCHLORIDE
  18. LISINOPRIL. [Concomitant]
     Active Substance: LISINOPRIL
  19. METFORMIN [Concomitant]
     Active Substance: METFORMIN HYDROCHLORIDE
  20. VITAMIN E [Concomitant]
     Active Substance: .ALPHA.-TOCOPHEROL

REACTIONS (1)
  - Infusion site thrombosis [Recovered/Resolved]

NARRATIVE: CASE EVENT DATE: 20191107
